FAERS Safety Report 17862144 (Version 1)
Quarter: 2020Q2

REPORT INFORMATION
  Report Type: Spontaneous
  Country: US (occurrence: US)
  Receive Date: 20200604
  Receipt Date: 20200604
  Transmission Date: 20200714
  Serious: No
  Sender: FDA-Public Use
  Company Number: US-AVEDRO-AVE-2020-0037-AE

PATIENT
  Sex: Female

DRUGS (2)
  1. AVEDRO CROSS-LINKING PRODUCT(S), UNSPECIFIED [Suspect]
     Active Substance: RIBOFLAVIN 5^-PHOSPHATE SODIUM
     Indication: KERATOCONUS
     Route: 047
     Dates: start: 2017, end: 2017
  2. UNSPECIFIED TOPICAL STEROID [Suspect]
     Active Substance: UNSPECIFIED INGREDIENT
     Indication: KERATITIS
     Route: 047

REACTIONS (7)
  - Cataract [Unknown]
  - Visual impairment [Unknown]
  - Keratitis [Unknown]
  - Insomnia [Unknown]
  - Corneal scar [Recovering/Resolving]
  - Condition aggravated [Not Recovered/Not Resolved]
  - Photophobia [Unknown]

NARRATIVE: CASE EVENT DATE: 2017
